FAERS Safety Report 4603204-8 (Version None)
Quarter: 2005Q1

REPORT INFORMATION
  Report Type: 
  Country: None (occurrence: None)
  Receive Date: 20050307
  Receipt Date: 20050221
  Transmission Date: 20050727
  Serious: Yes (Other)
  Sender: FDA-Public Use
  Company Number: 2005034484

PATIENT
  Age: 51 Year
  Sex: Female

DRUGS (5)
  1. ATARAX [Suspect]
     Indication: ILL-DEFINED DISORDER
     Dosage: ORAL
     Route: 048
  2. LORAZEPAM [Suspect]
     Indication: ILL-DEFINED DISORDER
     Dosage: (2.5 MG), ORAL
     Route: 048
  3. HALBMOND (BENZYLMANDELATE, BROMISOVAL, CARBROMAL, DIPHENHYDRAMINE HYDR [Suspect]
     Dosage: ORAL
     Route: 048
  4. DIAZEPAM [Suspect]
     Dosage: ORAL
     Route: 048
  5. ETHANOL (ETHANOL) [Suspect]
     Dosage: ORAL
     Route: 048

REACTIONS (5)
  - ALCOHOL USE [None]
  - COMA [None]
  - DIARRHOEA [None]
  - INTENTIONAL MISUSE [None]
  - SUICIDE ATTEMPT [None]
